FAERS Safety Report 6037805-X (Version None)
Quarter: 2009Q1

REPORT INFORMATION
  Report Type: 
  Country: None (occurrence: None)
  Receive Date: 20090114
  Receipt Date: 20081223
  Transmission Date: 20090719
  Serious: Yes (Other)
  Sender: FDA-Public Use
  Company Number: 20080379

PATIENT
  Age: 61 Year
  Sex: Male

DRUGS (1)
  1. VENOFER [Suspect]
     Indication: BLOOD ERYTHROPOIETIN
     Dosage: 50 MG, INTRAVENOUS;
     Route: 042
     Dates: start: 20081201, end: 20081203

REACTIONS (2)
  - HEPATITIS [None]
  - PANCREATITIS ACUTE [None]
